FAERS Safety Report 24453794 (Version 2)
Quarter: 2024Q4

REPORT INFORMATION
  Report Type: Spontaneous
  Country: MX (occurrence: MX)
  Receive Date: 20241017
  Receipt Date: 20241018
  Transmission Date: 20250115
  Serious: No
  Sender: ROCHE
  Company Number: MX-ROCHE-3457180

PATIENT
  Age: 53 Year
  Sex: Male
  Weight: 89.0 kg

DRUGS (1)
  1. RITUXIMAB [Suspect]
     Active Substance: RITUXIMAB
     Indication: Optic neuritis
     Dosage: DOSE WAS NOT REPORTED?LAST APPLICATION OF RITUXIMAB: /MAY/2023
     Route: 065
     Dates: start: 202112

REACTIONS (5)
  - Off label use [Unknown]
  - Blood glucose increased [Not Recovered/Not Resolved]
  - Aphasia [Not Recovered/Not Resolved]
  - Blood glucose increased [Unknown]
  - Blood urea decreased [Unknown]

NARRATIVE: CASE EVENT DATE: 20211201
